FAERS Safety Report 6922857-2 (Version None)
Quarter: 2010Q3

REPORT INFORMATION
  Report Type: 
  Country: None (occurrence: None)
  Receive Date: 20100813
  Receipt Date: 20100803
  Transmission Date: 20110219
  Serious: Yes (Other)
  Sender: FDA-Public Use
  Company Number: NL-PFIZER INC-2010076938

PATIENT
  Age: 62 Year
  Sex: Female

DRUGS (4)
  1. CHAMPIX [Suspect]
     Indication: SMOKING CESSATION THERAPY
     Dosage: UNK
     Dates: start: 20100605
  2. CHAMPIX [Suspect]
     Dosage: 1 MG, 1X/DAY
     Dates: start: 20100617
  3. ZOLOFT [Concomitant]
     Indication: ANTIDEPRESSANT THERAPY
     Dosage: UNK
     Route: 048
  4. CODEINE PHOSPHATE AND ACETAMINOPHEN [Concomitant]
     Dosage: 520 MG, UNK

REACTIONS (15)
  - ANGER [None]
  - ANXIETY [None]
  - DISTURBANCE IN ATTENTION [None]
  - DRUG INTERACTION [None]
  - EMOTIONAL DISORDER [None]
  - FEAR [None]
  - FEELING JITTERY [None]
  - GAIT DISTURBANCE [None]
  - IMPULSIVE BEHAVIOUR [None]
  - NAUSEA [None]
  - NIGHTMARE [None]
  - PAIN [None]
  - READING DISORDER [None]
  - SUICIDAL IDEATION [None]
  - VISUAL FIELD DEFECT [None]
